FAERS Safety Report 17601800 (Version 11)
Quarter: 2022Q2

REPORT INFORMATION
  Report Type: Report from Study
  Country: NL (occurrence: NL)
  Receive Date: 20200331
  Receipt Date: 20220421
  Transmission Date: 20220720
  Serious: Yes (Other)
  Sender: FDA-Public Use
  Company Number: NL-ABBVIE-18S-114-2555881-00

PATIENT
  Sex: Female
  Weight: 51 kg

DRUGS (10)
  1. CARBIDOPA\LEVODOPA [Suspect]
     Active Substance: CARBIDOPA\LEVODOPA
     Indication: Parkinson^s disease
     Dosage: MD: 12.5 ML CD: 3.0 ML/H ED: 2.0 ML?REMAINS AT 16 HOURS
     Route: 050
     Dates: start: 20150630
  2. CARBIDOPA\LEVODOPA [Suspect]
     Active Substance: CARBIDOPA\LEVODOPA
     Dosage: MD: 12.5 ML CD: 2.9 ML/H ED: 2.0 ML?REMAINS AT 16 HOURS
     Route: 050
  3. CARBIDOPA\LEVODOPA [Suspect]
     Active Substance: CARBIDOPA\LEVODOPA
     Dosage: MD: 12.5 ML CD: 2.9 ML/H ED: 2.0 ML?REMAINS AT 16 HOURS
     Route: 050
  4. CARBIDOPA\LEVODOPA [Suspect]
     Active Substance: CARBIDOPA\LEVODOPA
     Dosage: MD: 12.5 ML CD: 2.9 ML/H ED: 2.0 ML
     Route: 050
  5. CARBIDOPA\LEVODOPA [Suspect]
     Active Substance: CARBIDOPA\LEVODOPA
     Dosage: MD 11.5 ML; CD 2.9 ML/H; ED 2.0 ML
     Route: 050
  6. CARBIDOPA\LEVODOPA [Suspect]
     Active Substance: CARBIDOPA\LEVODOPA
     Dosage: MD 10.5 ML; CD 2.9 ML/H; ED 2.0 ML
     Route: 050
  7. SINEMET [Concomitant]
     Active Substance: CARBIDOPA\LEVODOPA
     Indication: Parkinson^s disease
  8. SINEMET [Concomitant]
     Active Substance: CARBIDOPA\LEVODOPA
     Dosage: CR
  9. SYMMETREL [Concomitant]
     Active Substance: AMANTADINE HYDROCHLORIDE
     Indication: Parkinson^s disease
  10. SINEMET [Concomitant]
     Active Substance: CARBIDOPA\LEVODOPA
     Indication: Product used for unknown indication
     Dosage: 125 CR

REACTIONS (56)
  - Gastrointestinal carcinoma [Recovered/Resolved]
  - Faeces hard [Recovered/Resolved]
  - Memory impairment [Not Recovered/Not Resolved]
  - Fibroma [Recovering/Resolving]
  - Restlessness [Not Recovered/Not Resolved]
  - Memory impairment [Recovered/Resolved]
  - Faeces hard [Not Recovered/Not Resolved]
  - Dyschezia [Recovered/Resolved]
  - Speech disorder [Not Recovered/Not Resolved]
  - Bowel movement irregularity [Recovering/Resolving]
  - Middle insomnia [Not Recovered/Not Resolved]
  - Urinary tract infection [Unknown]
  - Bone contusion [Not Recovered/Not Resolved]
  - Mood altered [Not Recovered/Not Resolved]
  - Fibroma [Recovered/Resolved]
  - Middle insomnia [Recovered/Resolved]
  - Muscle rigidity [Not Recovered/Not Resolved]
  - Affective disorder [Unknown]
  - Memory impairment [Not Recovered/Not Resolved]
  - Appetite disorder [Recovering/Resolving]
  - Gait disturbance [Not Recovered/Not Resolved]
  - Impulsive behaviour [Not Recovered/Not Resolved]
  - Tremor [Unknown]
  - Malaise [Not Recovered/Not Resolved]
  - Decreased appetite [Recovered/Resolved]
  - Gait disturbance [Not Recovered/Not Resolved]
  - Fatigue [Not Recovered/Not Resolved]
  - Fall [Not Recovered/Not Resolved]
  - Weight decreased [Recovering/Resolving]
  - Abnormal dreams [Not Recovered/Not Resolved]
  - Orthostatic hypotension [Unknown]
  - Dyskinesia [Not Recovered/Not Resolved]
  - Stoma site discharge [Recovered/Resolved]
  - Freezing phenomenon [Not Recovered/Not Resolved]
  - Hypotension [Not Recovered/Not Resolved]
  - On and off phenomenon [Not Recovered/Not Resolved]
  - Somnolence [Not Recovered/Not Resolved]
  - Stoma site haemorrhage [Recovered/Resolved]
  - Dizziness [Not Recovered/Not Resolved]
  - Stoma site discharge [Recovered/Resolved]
  - Parkinson^s disease [Recovered/Resolved]
  - Therapeutic product effect incomplete [Not Recovered/Not Resolved]
  - Sleep disorder [Unknown]
  - Unevaluable event [Recovered/Resolved]
  - Stoma site erythema [Recovered/Resolved]
  - Initial insomnia [Recovered/Resolved]
  - Stoma complication [Recovered/Resolved]
  - Stoma site inflammation [Recovered/Resolved]
  - Abdominal pain upper [Not Recovered/Not Resolved]
  - Hyperkinesia [Not Recovered/Not Resolved]
  - Constipation [Unknown]
  - Bradykinesia [Not Recovered/Not Resolved]
  - Device difficult to use [Unknown]
  - Device leakage [Unknown]
  - Device dislocation [Unknown]
  - Nocturia [Not Recovered/Not Resolved]

NARRATIVE: CASE EVENT DATE: 20200101
